FAERS Safety Report 5647180-8 (Version None)
Quarter: 2008Q1

REPORT INFORMATION
  Report Type: 
  Country: None (occurrence: None)
  Receive Date: 20080228
  Receipt Date: 20080228
  Transmission Date: 20080703
  Serious: No
  Sender: FDA-Public Use
  Company Number: None

PATIENT
  Age: 43 Year
  Sex: Male

DRUGS (1)
  1. ZOMIG [Suspect]
     Dosage: ORAL
     Route: 048
     Dates: start: 20080111, end: 20080118

REACTIONS (2)
  - HEADACHE [None]
  - VOMITING [None]
